FAERS Safety Report 6843414-2 (Version None)
Quarter: 2010Q3

REPORT INFORMATION
  Report Type: 
  Country: None (occurrence: None)
  Receive Date: 20100715
  Receipt Date: 20100706
  Transmission Date: 20110219
  Serious: Yes (Death, Other)
  Sender: FDA-Public Use
  Company Number: GB-WYE-G06367110

PATIENT
  Age: 50 Year
  Sex: Female
  Weight: 74 kg

DRUGS (5)
  1. VENLAFAXINE HYDROCHLORIDE [Suspect]
     Indication: DEPRESSION
     Route: 048
     Dates: start: 20070815
  2. TEMAZEPAM [Concomitant]
     Dosage: UNKNOWN
  3. QUETIAPINE [Concomitant]
     Dosage: UNKNOWN
  4. BISOPROLOL FUMARATE [Concomitant]
     Dosage: UNKNOWN
  5. OMEPRAZOLE [Concomitant]
     Dosage: UNKNOWN

REACTIONS (3)
  - DRUG TOXICITY [None]
  - LOSS OF CONSCIOUSNESS [None]
  - OVERDOSE [None]
